FAERS Safety Report 9857523 (Version 2)
Quarter: 2014Q1

REPORT INFORMATION
  Report Type: Report from Study
  Country: FR (occurrence: FR)
  Receive Date: 20140131
  Receipt Date: 20140131
  Transmission Date: 20141002
  Serious: Yes (Hospitalization)
  Sender: FDA-Public Use
  Company Number: PHHO2013FR015858

PATIENT
  Sex: 0

DRUGS (4)
  1. ZOLEDRONATE [Suspect]
     Indication: OSTEOSARCOMA
     Dosage: UNK
     Route: 042
  2. METHOTREXATE [Suspect]
     Indication: OSTEOSARCOMA
     Dosage: 10.56 G
     Route: 042
     Dates: start: 20130617
  3. VP-16 [Suspect]
     Indication: OSTEOSARCOMA
     Dosage: 66 MG
     Route: 042
     Dates: start: 20130711
  4. IFOSFAMIDE [Suspect]
     Indication: OSTEOSARCOMA
     Dosage: 2.64 G
     Route: 042
     Dates: start: 20130711

REACTIONS (1)
  - Skin necrosis [Not Recovered/Not Resolved]
